FAERS Safety Report 12850345 (Version 1)
Quarter: 2016Q4

REPORT INFORMATION
  Report Type: Spontaneous
  Country: DE (occurrence: DE)
  Receive Date: 20161014
  Receipt Date: 20161014
  Transmission Date: 20170207
  Serious: Yes (Death)
  Sender: FDA-Public Use
  Company Number: DE-TEVA-698889GER

PATIENT
  Age: 55 Year
  Sex: Male
  Weight: 77.7 kg

DRUGS (1)
  1. VENLAFAXIN-RATIOPHARM [Suspect]
     Active Substance: VENLAFAXINE HYDROCHLORIDE
     Indication: DEPRESSION
     Dosage: 150 MILLIGRAM DAILY;
     Route: 048
     Dates: start: 20160728, end: 20160822

REACTIONS (1)
  - Completed suicide [Fatal]

NARRATIVE: CASE EVENT DATE: 20160822
